FAERS Safety Report 7310815-8 (Version None)
Quarter: 2011Q1

REPORT INFORMATION
  Report Type: 
  Country: None (occurrence: None)
  Receive Date: 20110224
  Receipt Date: 20110221
  Transmission Date: 20110831
  Serious: Yes (Death, Life-Threatening)
  Sender: FDA-Public Use
  Company Number: PHHY2010JP88136

PATIENT
  Sex: Male
  Weight: 171 kg

DRUGS (15)
  1. RENIVEZE [Concomitant]
     Dosage: 5 MG DAILY
  2. AMLODIPINE [Concomitant]
     Dosage: 2.5 MG DAILY
     Dates: start: 20101108, end: 20101122
  3. EXFORGE [Suspect]
     Indication: HYPERTENSION
     Dosage: 1 DF, UNK
     Route: 048
     Dates: start: 20101123, end: 20101217
  4. NORVASC [Concomitant]
     Dosage: 2.5 MG DAILY
  5. LASIX [Concomitant]
     Dosage: 20 MG DAILY
     Route: 048
     Dates: start: 20101108, end: 20101222
  6. NITRODERM [Concomitant]
     Dosage: ONE SHEET
  7. VASOLATOR [Concomitant]
     Dosage: UNK
     Dates: start: 20101108, end: 20101222
  8. TANATRIL [Suspect]
     Dosage: 5 MG, UNK
     Route: 048
     Dates: start: 20101108, end: 20101122
  9. LANIRAPID [Concomitant]
     Dosage: 0.05 DF, QD
     Route: 048
     Dates: start: 20101108, end: 20101222
  10. ARTIST [Concomitant]
     Dosage: 2.5 MG DAILY
     Route: 048
     Dates: start: 20101108, end: 20101214
  11. ITOROL [Concomitant]
     Dosage: 40 MG DAILY
     Route: 048
     Dates: start: 20101108, end: 20101222
  12. SIGMART [Concomitant]
     Dosage: 20 MG DAILY
  13. FUROSEMIDE [Concomitant]
     Dosage: 60 MG DAILY (40 MG-20 MG-0 MG)
  14. KREMEZIN [Concomitant]
     Dosage: 6 CAPSULES DAILY IN 3 DIVIDED DOSES
  15. NICORANDIL [Concomitant]
     Dosage: 15 MG DAILY3T DAILY
     Route: 048
     Dates: start: 20101108, end: 20101222

REACTIONS (7)
  - CHEST PAIN [None]
  - BLOOD UREA INCREASED [None]
  - ANGINA PECTORIS [None]
  - VENTRICULAR FIBRILLATION [None]
  - EOSINOPHIL COUNT INCREASED [None]
  - RENAL FAILURE CHRONIC [None]
  - BLOOD CREATINE INCREASED [None]
